FAERS Safety Report 23295741 (Version 1)
Quarter: 2023Q4

REPORT INFORMATION
  Report Type: Spontaneous
  Country: FR (occurrence: FR)
  Receive Date: 20231214
  Receipt Date: 20231214
  Transmission Date: 20240110
  Serious: Yes (Other)
  Sender: FDA-Public Use
  Company Number: FR-GLAXOSMITHKLINE-FR2023EME172736

PATIENT

DRUGS (1)
  1. NUCALA [Suspect]
     Active Substance: MEPOLIZUMAB
     Indication: Product used for unknown indication
     Dosage: 100 MG, MO

REACTIONS (7)
  - Hypothyroidism [Unknown]
  - Exfoliative rash [Unknown]
  - Alopecia [Unknown]
  - Hot flush [Unknown]
  - Palpitations [Unknown]
  - Weight increased [Unknown]
  - Nausea [Unknown]
